FAERS Safety Report 4869301-7 (Version None)
Quarter: 2005Q4

REPORT INFORMATION
  Report Type: 
  Country: None (occurrence: None)
  Receive Date: 20051230
  Receipt Date: 20051221
  Transmission Date: 20060501
  Serious: Yes (Hospitalization)
  Sender: FDA-Public Use
  Company Number: US-JNJFOC-20051204617

PATIENT
  Sex: Male
  Weight: 90.72 kg

DRUGS (11)
  1. ULTRAM [Suspect]
     Indication: SHOULDER PAIN
  2. ULTRAM [Suspect]
     Indication: NECK PAIN
     Dosage: TWO 50 MG TABLETS EVERY FOUR HOURS.
  3. PROZAC [Interacting]
     Indication: ANXIETY
  4. PROZAC [Interacting]
     Indication: DEPRESSION
  5. PROZAC [Interacting]
     Indication: STRESS
  6. NEURONTIN [Concomitant]
     Indication: PAIN
  7. HYDROCODONE [Concomitant]
     Indication: PAIN
     Dosage: TWO 10/500 TABLETS EVERY EIGHT HOURS.
  8. LIPITOR [Concomitant]
  9. ZERTEC [Concomitant]
  10. PREVACID [Concomitant]
  11. NABUMETONE [Concomitant]

REACTIONS (4)
  - DRUG INTERACTION [None]
  - HOMICIDAL IDEATION [None]
  - NIGHTMARE [None]
  - SUICIDAL IDEATION [None]
